FAERS Safety Report 5706065-9 (Version None)
Quarter: 2008Q2

REPORT INFORMATION
  Report Type: 
  Country: None (occurrence: None)
  Receive Date: 20080415
  Receipt Date: 20080403
  Transmission Date: 20081010
  Serious: Yes (Hospitalization, Other)
  Sender: FDA-Public Use
  Company Number: BE-AMGEN-UK273354

PATIENT
  Sex: Female
  Weight: 62 kg

DRUGS (2)
  1. KEPIVANCE [Suspect]
     Indication: MUCOSAL INFLAMMATION
     Route: 042
     Dates: start: 20080206, end: 20080208
  2. MELPHALAN [Concomitant]
     Dates: start: 20080209

REACTIONS (4)
  - ANOREXIA [None]
  - GASTROINTESTINAL INFLAMMATION [None]
  - MUCOSAL INFECTION [None]
  - STOMATITIS [None]
